FAERS Safety Report 8286804-6 (Version None)
Quarter: 2012Q2

REPORT INFORMATION
  Report Type: 
  Country: None (occurrence: None)
  Receive Date: 20120416
  Receipt Date: 20120405
  Transmission Date: 20120825
  Serious: Yes (Other)
  Sender: FDA-Public Use
  Company Number: BR-BRISTOL-MYERS SQUIBB COMPANY-16512014

PATIENT
  Sex: Female

DRUGS (2)
  1. RITONAVIR [Suspect]
  2. REYATAZ [Suspect]

REACTIONS (1)
  - OSTEONECROSIS [None]
